FAERS Safety Report 8796828 (Version 5)
Quarter: 2013Q2

REPORT INFORMATION
  Report Type: Spontaneous
  Country: US (occurrence: US)
  Receive Date: 20120919
  Receipt Date: 20130508
  Transmission Date: 20140414
  Serious: Yes (Hospitalization, Other)
  Sender: FDA-Public Use
  Company Number: US-009507513-2012SP029908

PATIENT
  Sex: Female
  Weight: 88.44 kg

DRUGS (1)
  1. NUVARING [Suspect]
     Indication: CONTRACEPTION
     Dosage: 1 DF, QM FOR 28 DAYS
     Route: 067
     Dates: start: 200902, end: 200906

REACTIONS (18)
  - Vena cava filter insertion [Unknown]
  - Pulmonary embolism [Recovered/Resolved]
  - Deep vein thrombosis [Recovered/Resolved]
  - Abortion missed [Recovered/Resolved]
  - Vaginitis gardnerella [Unknown]
  - Pulmonary embolism [Unknown]
  - Pulmonary hypertension [Unknown]
  - Deep vein thrombosis [Unknown]
  - Aortic arteriosclerosis [Unknown]
  - Uterine leiomyoma [Unknown]
  - Menstrual disorder [Unknown]
  - Phlebitis [Unknown]
  - Thrombosis [Unknown]
  - Unintended pregnancy [Recovered/Resolved]
  - Uterine dilation and curettage [Unknown]
  - Drug prescribing error [Unknown]
  - Pulmonary embolism [Unknown]
  - Malaise [Unknown]
